FAERS Safety Report 4443450-X (Version None)
Quarter: 2004Q3

REPORT INFORMATION
  Report Type: 
  Country: None (occurrence: None)
  Receive Date: 20040908
  Receipt Date: 20030820
  Transmission Date: 20050211
  Serious: No
  Sender: FDA-Public Use
  Company Number: US-GLAXOSMITHKLINE-A0422737A

PATIENT
  Sex: Female

DRUGS (2)
  1. LAMICTAL [Suspect]
     Indication: EPILEPSY
     Dosage: 5MG PER DAY
     Route: 048
     Dates: start: 20030810
  2. DEPAKOTE [Concomitant]

REACTIONS (4)
  - DERMATITIS CONTACT [None]
  - HEAT RASH [None]
  - HYPERAESTHESIA [None]
  - RASH [None]
